FAERS Safety Report 20030222 (Version 1)
Quarter: 2021Q4

REPORT INFORMATION
  Report Type: Spontaneous
  Country: GB (occurrence: GB)
  Receive Date: 20211103
  Receipt Date: 20211103
  Transmission Date: 20220304
  Serious: Yes (Life-Threatening, Hospitalization)
  Sender: FDA-Public Use
  Company Number: GB-MYLANLABS-2021M1080498

PATIENT
  Age: 42 Year
  Sex: Female

DRUGS (14)
  1. HYDROCORTISONE [Suspect]
     Active Substance: HYDROCORTISONE
     Indication: COVID-19
     Dosage: FOR 10 DAYS
     Route: 065
     Dates: start: 20210102
  2. PIPERACILLIN SODIUM\TAZOBACTAM SODIUM [Suspect]
     Active Substance: PIPERACILLIN SODIUM\TAZOBACTAM SODIUM
     Indication: Antibiotic therapy
     Dosage: UNK
     Route: 065
     Dates: start: 20210102
  3. CLINDAMYCIN [Suspect]
     Active Substance: CLINDAMYCIN
     Indication: Antibiotic therapy
     Dosage: UNK
     Route: 065
     Dates: start: 20210102
  4. METOPROLOL [Suspect]
     Active Substance: METOPROLOL
     Indication: Tachyarrhythmia
     Dosage: UNK
     Route: 065
     Dates: start: 20210108
  5. FLECAINIDE [Suspect]
     Active Substance: FLECAINIDE
     Indication: Tachyarrhythmia
     Dosage: 150 MILLIGRAM
     Route: 042
     Dates: start: 20210108
  6. LABETALOL [Suspect]
     Active Substance: LABETALOL\LABETALOL HYDROCHLORIDE
     Indication: Tachyarrhythmia
     Dosage: UNK
     Route: 065
     Dates: start: 202101
  7. AMIODARONE [Suspect]
     Active Substance: AMIODARONE
     Indication: Tachyarrhythmia
     Dosage: 300 MILLIGRAM, SINGLE DOSE
     Route: 042
     Dates: start: 20210116
  8. BISOPROLOL [Suspect]
     Active Substance: BISOPROLOL
     Indication: Tachyarrhythmia
     Dosage: UNK
     Route: 065
     Dates: start: 20210116
  9. BETAMETHASONE [Suspect]
     Active Substance: BETAMETHASONE
     Indication: Maternal therapy to enhance foetal lung maturity
     Dosage: UNK
     Route: 065
     Dates: start: 20210103
  10. DIGOXIN [Suspect]
     Active Substance: DIGOXIN
     Indication: Tachyarrhythmia
     Dosage: UNK
     Route: 065
     Dates: start: 20210108
  11. HEPARIN [Suspect]
     Active Substance: HEPARIN SODIUM
     Indication: Thrombosis
     Dosage: UNK
     Route: 065
     Dates: start: 20210108
  12. HEPARIN [Suspect]
     Active Substance: HEPARIN SODIUM
     Indication: Anticoagulant therapy
  13. MEROPENEM [Suspect]
     Active Substance: MEROPENEM
     Indication: Antibiotic therapy
     Dosage: UNK
     Route: 065
     Dates: start: 2021
  14. AMIKACIN [Suspect]
     Active Substance: AMIKACIN
     Indication: Antibiotic therapy
     Dosage: UNK
     Route: 065
     Dates: start: 2021

REACTIONS (5)
  - Drug ineffective [Unknown]
  - Serratia infection [Recovered/Resolved]
  - Sepsis [Recovered/Resolved]
  - Off label use [Unknown]
  - Maternal exposure during pregnancy [Recovered/Resolved]

NARRATIVE: CASE EVENT DATE: 20210101
